FAERS Safety Report 4880812-0 (Version None)
Quarter: 2006Q1

REPORT INFORMATION
  Report Type: 
  Country: None (occurrence: None)
  Receive Date: 20060111
  Receipt Date: 20051123
  Transmission Date: 20060701
  Serious: No
  Sender: FDA-Public Use
  Company Number: 2005S1000188

PATIENT
  Age: 42 Year
  Weight: 76 kg

DRUGS (19)
  1. CUBICIN [Suspect]
     Indication: ARTHRITIS BACTERIAL
     Dosage: 500 MG;Q24H;IV
     Route: 042
     Dates: start: 20050101, end: 20050101
  2. CUBICIN [Suspect]
  3. CUBICIN [Suspect]
  4. CUBICIN [Suspect]
  5. CUBICIN [Suspect]
  6. ALBUTEROL [Concomitant]
  7. CYCLOBENZAPRINE HCL [Concomitant]
  8. HYDROCHLORIDE [Concomitant]
  9. LEVOTHYROXINE SODIUM [Concomitant]
  10. RIFAMPIN [Concomitant]
  11. FUROSEMIDE [Concomitant]
  12. ZOLPIDEM TARTRATE [Concomitant]
  13. POTASSIUM CHLORIDE [Concomitant]
  14. IRON [Concomitant]
  15. ESCITALOPRAM OXALATE [Concomitant]
  16. PANTOPRAZOLE [Concomitant]
  17. NYSTATIN [Concomitant]
  18. SENNA [Concomitant]
  19. DEPAKOTE [Concomitant]

REACTIONS (1)
  - MUSCLE TWITCHING [None]
